FAERS Safety Report 9753841 (Version 1)
Quarter: 2013Q4

REPORT INFORMATION
  Report Type: Spontaneous
  Country: US (occurrence: US)
  Receive Date: 20131213
  Receipt Date: 20131213
  Transmission Date: 20140711
  Serious: Yes (Hospitalization)
  Sender: FDA-Public Use
  Company Number: US-GILEAD-2010-0027551

PATIENT
  Age: 76 Year
  Sex: Male
  Weight: 98.88 kg

DRUGS (12)
  1. LETAIRIS [Suspect]
     Indication: PULMONARY ARTERIAL HYPERTENSION
     Route: 048
     Dates: start: 20080417, end: 20100205
  2. REVATIO [Concomitant]
     Indication: PULMONARY HYPERTENSION
  3. BABY ASPIRIN [Concomitant]
     Indication: PROPHYLAXIS
  4. ALBUTEROL [Concomitant]
     Indication: ASTHMA
  5. ADVAIR [Concomitant]
     Indication: ASTHMA
  6. SPIRIVA [Concomitant]
     Indication: ASTHMA
  7. MIRAPEX [Concomitant]
     Indication: RESTLESS LEGS SYNDROME
  8. PAXIL [Concomitant]
     Indication: DEPRESSION
  9. NEXIUM [Concomitant]
     Indication: GASTROOESOPHAGEAL REFLUX DISEASE
  10. LIPITOR [Concomitant]
     Indication: BLOOD CHOLESTEROL ABNORMAL
  11. POTASSIUM CHLORIDE [Concomitant]
     Indication: MINERAL SUPPLEMENTATION
  12. CALCIUM SUPPLEMENT [Concomitant]
     Indication: MINERAL SUPPLEMENTATION

REACTIONS (2)
  - Oedema peripheral [Recovered/Resolved]
  - Dyspnoea [Not Recovered/Not Resolved]
